FAERS Safety Report 23675705 (Version 1)
Quarter: 2024Q1

REPORT INFORMATION
  Report Type: Other
  Country: CA (occurrence: CA)
  Receive Date: 20240327
  Receipt Date: 20240327
  Transmission Date: 20240409
  Serious: Yes (Other)
  Sender: FDA-Public Use
  Company Number: CA-APOTEX-2024AP003617

PATIENT
  Age: 55 Year
  Sex: Male

DRUGS (2)
  1. IMATINIB MESYLATE [Suspect]
     Active Substance: IMATINIB MESYLATE
     Indication: Thrombocytopenia
     Dosage: 200 MILLIGRAM, QD
     Route: 048
  2. IMATINIB MESYLATE [Suspect]
     Active Substance: IMATINIB MESYLATE
     Indication: Chronic myeloid leukaemia
     Dosage: 400 MILLIGRAM, QD
     Route: 048

REACTIONS (6)
  - Oncocytoma [Recovered/Resolved]
  - Renal cell carcinoma [Recovered/Resolved]
  - Renal mass [Recovered/Resolved]
  - Second primary malignancy [Recovered/Resolved]
  - Splenomegaly [Recovered/Resolved]
  - Haemorrhage [Recovered/Resolved]
